FAERS Safety Report 7979116-9 (Version None)
Quarter: 2011Q4

REPORT INFORMATION
  Report Type: 
  Country: None (occurrence: None)
  Receive Date: 20111214
  Receipt Date: 20111205
  Transmission Date: 20120403
  Serious: Yes (Hospitalization)
  Sender: FDA-Public Use
  Company Number: US-BAYER-201031171NA

PATIENT
  Age: 50 Year
  Sex: Female
  Weight: 51.247 kg

DRUGS (6)
  1. YASMIN [Suspect]
     Indication: ACNE
  2. YAZ [Suspect]
     Indication: ACNE
  3. DROSPIRENONE AND ETHINYL ESTRADIOL [Suspect]
     Indication: CONTRACEPTION
     Dosage: UNK
     Dates: start: 19980601, end: 20090830
  4. YASMIN [Suspect]
     Indication: CONTRACEPTION
     Dosage: UNK
     Route: 048
     Dates: start: 19980601, end: 20090830
  5. YAZ [Suspect]
     Indication: CONTRACEPTION
     Dosage: UNK
     Dates: start: 19980601, end: 20090830
  6. DROSPIRENONE AND ETHINYL ESTRADIOL [Suspect]
     Indication: ACNE

REACTIONS (12)
  - PARESIS [None]
  - DYSARTHRIA [None]
  - PARAESTHESIA [None]
  - HEMIPARESIS [None]
  - CONVULSION [None]
  - CEREBROVASCULAR ACCIDENT [None]
  - PAIN [None]
  - PARTIAL SEIZURES [None]
  - INJURY [None]
  - DISCOMFORT [None]
  - CEREBRAL INFARCTION [None]
  - VISUAL IMPAIRMENT [None]
